FAERS Safety Report 7375912-X (Version None)
Quarter: 2011Q1

REPORT INFORMATION
  Report Type: 
  Country: None (occurrence: None)
  Receive Date: 20110325
  Receipt Date: 20110322
  Transmission Date: 20110831
  Serious: Yes (Disabling)
  Sender: FDA-Public Use
  Company Number: B0707313A

PATIENT
  Sex: Female
  Weight: 49 kg

DRUGS (5)
  1. FLUTICASONE PROPIONATE [Concomitant]
     Indication: BRONCHITIS CHRONIC
     Dates: end: 20100901
  2. SALMETEROL + FLUTICASONE [Suspect]
     Indication: BRONCHITIS CHRONIC
     Route: 055
     Dates: start: 20100901, end: 20110119
  3. AMOXICILLIN [Concomitant]
     Indication: RESPIRATORY TRACT INFECTION
     Route: 048
     Dates: start: 20101201, end: 20101201
  4. CLARITHROMYCIN [Concomitant]
     Indication: RESPIRATORY TRACT INFECTION
     Route: 048
     Dates: start: 20101201, end: 20101201
  5. SALMETEROL XINAFOATE [Concomitant]
     Indication: BRONCHITIS CHRONIC
     Route: 055
     Dates: end: 20100901

REACTIONS (7)
  - SENSATION OF FOREIGN BODY [None]
  - DYSPNOEA [None]
  - FATIGUE [None]
  - DRUG INEFFECTIVE [None]
  - PRODUCT QUALITY ISSUE [None]
  - THROAT IRRITATION [None]
  - COUGH [None]
